FAERS Safety Report 7530207-6 (Version None)
Quarter: 2011Q2

REPORT INFORMATION
  Report Type: 
  Country: None (occurrence: None)
  Receive Date: 20110607
  Receipt Date: 20110525
  Transmission Date: 20111010
  Serious: Yes (Other)
  Sender: FDA-Public Use
  Company Number: B0723670A

PATIENT
  Age: 32 Year
  Sex: Female

DRUGS (4)
  1. PAROXETINE HCL [Concomitant]
     Indication: AGORAPHOBIA
     Dosage: 20MG PER DAY
     Route: 048
     Dates: start: 20110101
  2. XANAX [Concomitant]
     Indication: AGORAPHOBIA
     Dosage: 1.5MG PER DAY
     Route: 048
     Dates: start: 20100101
  3. KETONAL [Concomitant]
     Dosage: 100MG PER DAY
     Route: 048
  4. ALLI [Suspect]
     Dosage: 60MG THREE TIMES PER DAY
     Route: 048
     Dates: start: 20110415, end: 20110418

REACTIONS (4)
  - FLATULENCE [None]
  - OEDEMA PERIPHERAL [None]
  - SWELLING FACE [None]
  - ABDOMINAL DISCOMFORT [None]
